FAERS Safety Report 9158626 (Version 2)
Quarter: 2015Q2

REPORT INFORMATION
  Report Type: Spontaneous
  Country: US (occurrence: US)
  Receive Date: 20130312
  Receipt Date: 20150420
  Transmission Date: 20150821
  Serious: Yes (Hospitalization, Other)
  Sender: FDA-Public Use
  Company Number: PHHY2013US022838

PATIENT
  Age: 11 Month
  Sex: Male
  Weight: 10.4 kg

DRUGS (18)
  1. MIDAZOLAM [Suspect]
     Active Substance: MIDAZOLAM\MIDAZOLAM HYDROCHLORIDE
     Indication: SEDATION
     Dosage: 0.25 MG/KG (0.15-0.25 MG/KG/H)
     Route: 042
  2. LEVALBUTEROL HCL [Concomitant]
     Active Substance: LEVALBUTEROL HYDROCHLORIDE
     Indication: PRODUCT USED FOR UNKNOWN INDICATION
     Route: 065
  3. PROPOFOL. [Concomitant]
     Active Substance: PROPOFOL
     Indication: PRODUCT USED FOR UNKNOWN INDICATION
     Dosage: 250 UG/KG/MIN
     Route: 042
  4. CLONIDINE. [Concomitant]
     Active Substance: CLONIDINE
     Indication: PRODUCT USED FOR UNKNOWN INDICATION
     Dosage: 8 UG/KG, QD
     Route: 042
  5. FENTANYL. [Suspect]
     Active Substance: FENTANYL
     Indication: SEDATION
     Dosage: 5 UG/KG/HR
     Route: 042
  6. METHADONE [Suspect]
     Active Substance: METHADONE HYDROCHLORIDE
     Indication: SEDATION
     Dosage: 32 MG (2.9 MG/KG)
     Route: 042
  7. PENTOBARBITAL [Suspect]
     Active Substance: PENTOBARBITAL
     Dosage: 120 MG (7.4 -11.1 MG/KG)
     Route: 042
  8. SILDENAFIL. [Concomitant]
     Active Substance: SILDENAFIL
     Indication: PRODUCT USED FOR UNKNOWN INDICATION
     Route: 065
  9. PROPOFOL. [Concomitant]
     Active Substance: PROPOFOL
     Dosage: 5 MG, UNK
     Route: 042
  10. MIDAZOLAM [Suspect]
     Active Substance: MIDAZOLAM\MIDAZOLAM HYDROCHLORIDE
     Dosage: 10 MG (0.6-0.9 MG/KG)
     Route: 042
  11. MORPHINE [Suspect]
     Active Substance: MORPHINE
     Dosage: 3 MG (0.1-0.3 MG/KG)
     Route: 042
  12. MIDAZOLAM [Suspect]
     Active Substance: MIDAZOLAM\MIDAZOLAM HYDROCHLORIDE
     Dosage: 0.1 MG/KG, UNK
     Route: 042
  13. BUDESONIDE. [Concomitant]
     Active Substance: BUDESONIDE
     Indication: PRODUCT USED FOR UNKNOWN INDICATION
     Route: 065
  14. DEXMEDETOMIDINE [Concomitant]
     Active Substance: DEXMEDETOMIDINE
     Indication: PRODUCT USED FOR UNKNOWN INDICATION
     Dosage: 0.7 UG/KG/HR
     Route: 041
  15. MORPHINE [Suspect]
     Active Substance: MORPHINE
     Indication: SEDATION
     Dosage: 0.2 MG/KG (0.05 TO 0.2 MG/KG/HR)
     Route: 042
  16. LORAZEPAM. [Suspect]
     Active Substance: LORAZEPAM
     Indication: SEDATION
     Dosage: 10 MG (0.7-0.9 MG/KG)
     Route: 042
  17. LANSOPRAZOLE. [Concomitant]
     Active Substance: LANSOPRAZOLE
     Indication: PRODUCT USED FOR UNKNOWN INDICATION
     Route: 065
  18. PENTOBARBITAL [Suspect]
     Active Substance: PENTOBARBITAL
     Indication: SEDATION
     Dosage: 3 MG/KG (0.25-3 MG/KG/H)
     Route: 042

REACTIONS (10)
  - Insomnia [Recovered/Resolved]
  - Agitation [Recovered/Resolved]
  - Restlessness [Recovered/Resolved]
  - Chorea [Recovered/Resolved]
  - Feeling jittery [Recovered/Resolved]
  - Crying [Recovered/Resolved]
  - Drug ineffective [Unknown]
  - Pyrexia [Recovered/Resolved]
  - Akathisia [Recovered/Resolved]
  - Withdrawal syndrome [Recovered/Resolved]
